FAERS Safety Report 6248461-X (Version None)
Quarter: 2009Q2

REPORT INFORMATION
  Report Type: 
  Country: None (occurrence: None)
  Receive Date: 20090624
  Receipt Date: 20090608
  Transmission Date: 20091009
  Serious: Yes (Death, Hospitalization)
  Sender: FDA-Public Use
  Company Number: 2009AL001995

PATIENT
  Age: 65 Year
  Sex: Female

DRUGS (1)
  1. DIGOXIN [Suspect]
     Dosage: PO
     Route: 048
     Dates: start: 20061003

REACTIONS (6)
  - BRAIN NATRIURETIC PEPTIDE INCREASED [None]
  - CARDIOACTIVE DRUG LEVEL INCREASED [None]
  - DIARRHOEA [None]
  - DYSPNOEA [None]
  - ECONOMIC PROBLEM [None]
  - INJURY [None]
